FAERS Safety Report 4709269-7 (Version None)
Quarter: 2005Q3

REPORT INFORMATION
  Report Type: 
  Country: None (occurrence: None)
  Receive Date: 20050705
  Receipt Date: 20050620
  Transmission Date: 20060218
  Serious: Yes (Other)
  Sender: FDA-Public Use
  Company Number: 2005090309

PATIENT
  Sex: Male

DRUGS (1)
  1. CORTIZONE UNSPECIFIED (HYDROCORTISONE) [Suspect]
     Indication: ACCIDENTAL EXPOSURE
     Dosage: WHOLE TUBE, ORAL
     Route: 048

REACTIONS (3)
  - ACCIDENTAL EXPOSURE [None]
  - CYANOSIS [None]
  - INCORRECT ROUTE OF DRUG ADMINISTRATION [None]
